FAERS Safety Report 15068896 (Version 1)
Quarter: 2018Q2

REPORT INFORMATION
  Report Type: Spontaneous
  Country: FR (occurrence: FR)
  Receive Date: 20180626
  Receipt Date: 20180626
  Transmission Date: 20180711
  Serious: Yes (Life-Threatening, Hospitalization, Other)
  Sender: FDA-Public Use
  Company Number: FR-ELI_LILLY_AND_COMPANY-FR201806010763

PATIENT
  Age: 45 Year
  Sex: Female
  Weight: 57 kg

DRUGS (13)
  1. LEPTICUR [Suspect]
     Active Substance: TROPATEPINE HYDROCHLORIDE
     Indication: PRODUCT USED FOR UNKNOWN INDICATION
     Dosage: UNK UNK, UNKNOWN
     Route: 065
  2. SEROPLEX [Suspect]
     Active Substance: ESCITALOPRAM OXALATE
     Indication: ANXIETY
     Dosage: UNK UNK, UNKNOWN
     Route: 065
     Dates: end: 20121003
  3. LEXAPRO [Suspect]
     Active Substance: ESCITALOPRAM OXALATE
     Indication: MAJOR DEPRESSION
     Dosage: 10 MG, DAILY
     Route: 065
     Dates: end: 20121003
  4. ABILIFY [Suspect]
     Active Substance: ARIPIPRAZOLE
     Indication: PSYCHOTIC DISORDER
     Dosage: 10 MG, UNKNOWN
     Route: 065
     Dates: start: 20120907, end: 20121019
  5. DEPAMIDE [Suspect]
     Active Substance: VALPROMIDE
     Indication: AFFECTIVE DISORDER
     Dosage: UNK UNK, UNKNOWN
     Route: 048
     Dates: start: 20120914
  6. DOPAMIDE [Suspect]
     Active Substance: METHYLDOPA
     Indication: AFFECTIVE DISORDER
     Dosage: UNK UNK, UNKNOWN
     Route: 048
     Dates: start: 20120914
  7. ANAFRANIL [Suspect]
     Active Substance: CLOMIPRAMINE HYDROCHLORIDE
     Indication: MAJOR DEPRESSION
     Dosage: UNK UNK, UNKNOWN
     Route: 048
     Dates: start: 20121004
  8. ZOPICLONE [Suspect]
     Active Substance: ZOPICLONE
     Indication: INSOMNIA
     Dosage: 7.5 MG, DAILY
     Route: 048
     Dates: start: 20120907
  9. ZYPREXA [Suspect]
     Active Substance: OLANZAPINE
     Indication: PRODUCT USED FOR UNKNOWN INDICATION
     Dosage: UNK UNK, UNKNOWN
     Route: 065
  10. OLANZAPINE. [Suspect]
     Active Substance: OLANZAPINE
     Indication: PRODUCT USED FOR UNKNOWN INDICATION
     Dosage: 15 MG, UNKNOWN
     Route: 065
  11. SEROPLEX [Suspect]
     Active Substance: ESCITALOPRAM OXALATE
     Indication: MAJOR DEPRESSION
     Dosage: UNK UNK, UNKNOWN
     Route: 065
     Dates: end: 20121003
  12. SERESTA [Suspect]
     Active Substance: OXAZEPAM
     Indication: ANXIETY
     Dosage: HALF A TABLET IN THE MORNING AND AT MID DAY AND 1 TAB IN THE EVENING
     Route: 048
     Dates: start: 20120907
  13. IMOVANE [Suspect]
     Active Substance: ZOPICLONE
     Indication: INSOMNIA
     Dosage: UNK UNK, UNKNOWN
     Route: 048
     Dates: start: 20120907

REACTIONS (8)
  - Anxiety [Recovered/Resolved]
  - Coordination abnormal [Unknown]
  - Dysstasia [Recovered/Resolved]
  - Gait inability [Recovered/Resolved]
  - Apathy [Recovered/Resolved]
  - Suicide attempt [Recovered/Resolved]
  - Insomnia [Recovered/Resolved]
  - Asthenia [Recovered/Resolved]

NARRATIVE: CASE EVENT DATE: 2012
